FAERS Safety Report 12092419 (Version 1)
Quarter: 2016Q1

REPORT INFORMATION
  Report Type: Spontaneous
  Country: US (occurrence: None)
  Receive Date: 20160217
  Receipt Date: 20160217
  Transmission Date: 20160526
  Serious: No
  Sender: FDA-Public Use
  Company Number: None

PATIENT
  Age: 79 Year
  Sex: Male
  Weight: 75.75 kg

DRUGS (2)
  1. ZOLOFT [Suspect]
     Active Substance: SERTRALINE HYDROCHLORIDE
     Indication: INSOMNIA
     Dosage: 100 MG TOOK ONE DOSE ORAL
     Route: 048
     Dates: start: 20160126
  2. ZOLOFT [Suspect]
     Active Substance: SERTRALINE HYDROCHLORIDE
     Indication: ANXIETY
     Dosage: 100 MG TOOK ONE DOSE ORAL
     Route: 048
     Dates: start: 20160126

REACTIONS (6)
  - Swollen tongue [None]
  - Musculoskeletal stiffness [None]
  - Psychomotor hyperactivity [None]
  - Dry mouth [None]
  - Speech disorder [None]
  - Fatigue [None]

NARRATIVE: CASE EVENT DATE: 20160126
